FAERS Safety Report 17314676 (Version 1)
Quarter: 2020Q1

REPORT INFORMATION
  Report Type: Spontaneous
  Country: US (occurrence: US)
  Receive Date: 20200124
  Receipt Date: 20200124
  Transmission Date: 20200409
  Serious: No
  Sender: FDA-Public Use
  Company Number: US-ASTRAZENECA-2020SE09192

PATIENT
  Sex: Male

DRUGS (10)
  1. FAMOTIDINE. [Concomitant]
     Active Substance: FAMOTIDINE
  2. FUROSEMIDE. [Concomitant]
     Active Substance: FUROSEMIDE
  3. GOODSENSE ASPIRIN ADULT L [Concomitant]
  4. SYNAGIS [Suspect]
     Active Substance: PALIVIZUMAB
     Indication: ANTIVIRAL PROPHYLAXIS
     Route: 030
     Dates: start: 201810
  5. REVATIO [Concomitant]
     Active Substance: SILDENAFIL CITRATE
  6. CVS GLYCERIN CHILD [Concomitant]
  7. SYNAGIS [Suspect]
     Active Substance: PALIVIZUMAB
     Indication: ANTIVIRAL PROPHYLAXIS
     Dosage: STRENGTH: 50 MG/0.5 ML
     Route: 030
  8. NEXIUM [Suspect]
     Active Substance: ESOMEPRAZOLE MAGNESIUM
     Dosage: UNKNOWN UNKNOWN
     Route: 065
  9. AMOXICILLIN. [Concomitant]
     Active Substance: AMOXICILLIN
  10. CHILDRENS CHEWABLE ASPIRIN [Concomitant]
     Active Substance: ASPIRIN

REACTIONS (1)
  - Cough [Unknown]
